FAERS Safety Report 5951512-0 (Version None)
Quarter: 2008Q4

REPORT INFORMATION
  Report Type: 
  Country: None (occurrence: None)
  Receive Date: 20081113
  Receipt Date: 20081105
  Transmission Date: 20090506
  Serious: Yes (Life-Threatening)
  Sender: FDA-Public Use
  Company Number: GB-ROCHE-595833

PATIENT
  Age: 80 Year
  Sex: Male

DRUGS (4)
  1. CEFTRIAXONE [Suspect]
     Indication: ABDOMINAL SEPSIS
     Dosage: DOSAGE/INTERVAL: 1/1 TOTAL
     Route: 042
     Dates: start: 20080916, end: 20080916
  2. MEROPENEM [Suspect]
     Indication: ABDOMINAL SEPSIS
     Route: 042
     Dates: start: 20080916, end: 20080922
  3. HYDROCORTISONE [Concomitant]
     Indication: SEPTIC SHOCK
     Route: 042
     Dates: start: 20080916, end: 20080924
  4. METRONIDAZOLE [Concomitant]
     Indication: ABDOMINAL SEPSIS
     Dosage: 1/1 TOTAL
     Route: 042
     Dates: start: 20080916, end: 20080916

REACTIONS (3)
  - HYPOTENSION [None]
  - RASH MACULO-PAPULAR [None]
  - TOXIC EPIDERMAL NECROLYSIS [None]
